FAERS Safety Report 23037686 (Version 1)
Quarter: 2023Q4

REPORT INFORMATION
  Report Type: Spontaneous
  Country: US (occurrence: None)
  Receive Date: 20231005
  Receipt Date: 20231005
  Transmission Date: 20240109
  Serious: Yes (Life-Threatening, Hospitalization)
  Sender: FDA-Public Use
  Company Number: None

PATIENT
  Age: 59 Year
  Sex: Male
  Weight: 89.2 kg

DRUGS (1)
  1. YESCARTA [Suspect]
     Active Substance: AXICABTAGENE CILOLEUCEL
     Indication: Diffuse large B-cell lymphoma recurrent
     Dosage: OTHER FREQUENCY : ONCE;?
     Route: 042
     Dates: start: 20230829, end: 20230829

REACTIONS (7)
  - Cytokine release syndrome [None]
  - Pleural effusion [None]
  - Atelectasis [None]
  - Confusional state [None]
  - Immune effector cell-associated neurotoxicity syndrome [None]
  - Refusal of treatment by patient [None]
  - Treatment noncompliance [None]

NARRATIVE: CASE EVENT DATE: 20230903
